FAERS Safety Report 7491391-6 (Version None)
Quarter: 2011Q2

REPORT INFORMATION
  Report Type: 
  Country: None (occurrence: None)
  Receive Date: 20110519
  Receipt Date: 20110509
  Transmission Date: 20111010
  Serious: No
  Sender: FDA-Public Use
  Company Number: PHHY2010US52511

PATIENT
  Sex: Male
  Weight: 108.39 kg

DRUGS (8)
  1. ALLOPURINOL [Concomitant]
     Dosage: 100 UNK, UNK
  2. TASIGNA [Suspect]
     Dosage: 2 DF, BID
     Route: 048
  3. HYDROXYUREA [Concomitant]
     Dosage: UNK
  4. LEXAPRO [Concomitant]
     Dosage: UNK
  5. ATENOLOL [Concomitant]
     Dosage: UNK
  6. HYDROCHLOROTHIAZDE TAB [Concomitant]
     Dosage: UNK
  7. FISH OIL [Concomitant]
  8. COZAAR [Concomitant]
     Dosage: UNK

REACTIONS (2)
  - DIARRHOEA [None]
  - DRY SKIN [None]
